FAERS Safety Report 25189902 (Version 1)
Quarter: 2025Q2

REPORT INFORMATION
  Report Type: Report from Study
  Country: AR (occurrence: AR)
  Receive Date: 20250411
  Receipt Date: 20250411
  Transmission Date: 20250717
  Serious: Yes (Other)
  Sender: EMD SERONO INC
  Company Number: AR-Merck Healthcare KGaA-2025017183

PATIENT
  Age: 49 Year
  Sex: Female

DRUGS (2)
  1. MAVENCLAD [Suspect]
     Active Substance: CLADRIBINE
     Indication: Multiple sclerosis
  2. MAVENCLAD [Suspect]
     Active Substance: CLADRIBINE
     Dates: start: 20230926

REACTIONS (2)
  - Rheumatoid arthritis [Recovering/Resolving]
  - Multiple sclerosis [Recovering/Resolving]

NARRATIVE: CASE EVENT DATE: 20250101
